FAERS Safety Report 14177965 (Version 2)
Quarter: 2018Q1

REPORT INFORMATION
  Report Type: Spontaneous
  Country: AT (occurrence: AT)
  Receive Date: 20171110
  Receipt Date: 20180112
  Transmission Date: 20180508
  Serious: Yes (Death, Life-Threatening, Hospitalization)
  Sender: FDA-Public Use
  Company Number: AT-ALLERGAN-1764439US

PATIENT
  Age: 73 Year
  Sex: Male

DRUGS (23)
  1. TRITTICO [Suspect]
     Active Substance: TRAZODONE HYDROCHLORIDE
     Indication: PRODUCT USED FOR UNKNOWN INDICATION
     Dosage: HALF AT NIGHT
     Route: 065
     Dates: start: 20160125, end: 20160130
  2. SEROQUEL [Suspect]
     Active Substance: QUETIAPINE FUMARATE
     Indication: PRODUCT USED FOR UNKNOWN INDICATION
     Dosage: AS NEEDED
     Route: 065
     Dates: start: 20160125
  3. ELOMEL [Concomitant]
     Dosage: 1 DAILY
     Route: 065
     Dates: start: 20160129, end: 20160130
  4. OPTINEM [Concomitant]
     Active Substance: MEROPENEM
     Dosage: UNK
     Route: 065
     Dates: start: 20160129, end: 20160210
  5. EPOETIN THETA [Concomitant]
     Active Substance: ERYTHROPOIETIN
     Dosage: 1 WEEKLY
     Route: 065
  6. AQUAPHORIL [Concomitant]
     Active Substance: XIPAMIDE
     Dosage: HALF IN THE MORNING
     Route: 065
  7. ESCITALOPRAM OXALATE - BP [Suspect]
     Active Substance: ESCITALOPRAM OXALATE
     Indication: PRODUCT USED FOR UNKNOWN INDICATION
     Dosage: 2 DF, QAM
     Route: 065
     Dates: start: 20160125, end: 20160130
  8. ESCITALOPRAM OXALATE - BP [Suspect]
     Active Substance: ESCITALOPRAM OXALATE
     Dosage: 1 DF, QAM
     Route: 065
     Dates: start: 20160212
  9. STALEVO [Suspect]
     Active Substance: CARBIDOPA\ENTACAPONE\LEVODOPA
     Indication: PRODUCT USED FOR UNKNOWN INDICATION
     Dosage: 1 DF, QAM
     Route: 065
     Dates: start: 20160125, end: 20160128
  10. SEDACORON [Concomitant]
     Active Substance: AMIODARONE HYDROCHLORIDE
     Dosage: HALF IN THE MORNING
     Route: 065
  11. CEFTRIAXONE SODIUM. [Concomitant]
     Active Substance: CEFTRIAXONE SODIUM
     Dosage: 2 G IN 200 ML, 1 DAILY
     Route: 065
  12. ISOPHANE INSULIN [Concomitant]
     Active Substance: INSULIN NOS
     Dosage: 6IE-0-0 (INTERNATIONAL UNIT)
     Route: 065
  13. LASIX [Concomitant]
     Active Substance: FUROSEMIDE
     Dosage: UNK
     Route: 065
     Dates: start: 20160129
  14. TORASEMIDE [Concomitant]
     Active Substance: TORSEMIDE
     Dosage: ONE IN THE MORNING
     Route: 065
  15. MADOPAR 62.5 [Suspect]
     Active Substance: BENSERAZIDE HYDROCHLORIDE\LEVODOPA
     Indication: PRODUCT USED FOR UNKNOWN INDICATION
     Dosage: 1 DF, TID
     Route: 065
     Dates: start: 20160125
  16. STALEVO [Suspect]
     Active Substance: CARBIDOPA\ENTACAPONE\LEVODOPA
     Dosage: UNK
     Route: 065
     Dates: start: 20160212
  17. STALEVO [Suspect]
     Active Substance: CARBIDOPA\ENTACAPONE\LEVODOPA
     Dosage: 1 DF, BID (ONE IN THE MORNING, ONE AT NOON)
     Route: 065
     Dates: start: 20160212
  18. LOVENOX [Concomitant]
     Active Substance: ENOXAPARIN SODIUM
     Dosage: 1 DAILY
     Route: 065
     Dates: start: 20160125
  19. THROMBO ASS [Concomitant]
     Active Substance: ASPIRIN
     Dosage: 1 AT NOON
     Route: 065
     Dates: start: 20160129
  20. DANCOR [Concomitant]
     Active Substance: NICORANDIL
     Dosage: ONE IN THE MORNING, ONE IN THE EVENING
     Route: 065
  21. AZILECT [Suspect]
     Active Substance: RASAGILINE MESYLATE
     Indication: PRODUCT USED FOR UNKNOWN INDICATION
     Dosage: 1 DF, QAM
     Route: 065
     Dates: start: 20160125, end: 20160130
  22. SPIROBENE [Concomitant]
     Active Substance: SPIRONOLACTONE
     Dosage: HALF AT NOON
     Route: 065
     Dates: start: 20160129
  23. PANTOLOC [Concomitant]
     Active Substance: PANTOPRAZOLE SODIUM
     Dosage: TWO IN THE MORNING
     Route: 065

REACTIONS (10)
  - Pneumonia [Fatal]
  - Atrial fibrillation [Fatal]
  - Fatigue [Fatal]
  - Dehydration [Fatal]
  - Cardiac disorder [Fatal]
  - Condition aggravated [Fatal]
  - Renal impairment [Fatal]
  - Coronary artery disease [Fatal]
  - Weight decreased [Fatal]
  - Oedema peripheral [Fatal]

NARRATIVE: CASE EVENT DATE: 20160125
